FAERS Safety Report 6620107-8 (Version None)
Quarter: 2010Q1

REPORT INFORMATION
  Report Type: 
  Country: None (occurrence: None)
  Receive Date: 20100308
  Receipt Date: 20100308
  Transmission Date: 20100710
  Serious: No
  Sender: FDA-Public Use
  Company Number: None

PATIENT
  Sex: Female

DRUGS (1)
  1. BACTRIM DS [Suspect]
     Dosage: 800MG/160 2 BID X 10 DAYS PO
     Route: 048
     Dates: start: 20100215, end: 20100223

REACTIONS (1)
  - RASH GENERALISED [None]
